FAERS Safety Report 4411769-4 (Version None)
Quarter: 2004Q3

REPORT INFORMATION
  Report Type: 
  Country: None (occurrence: None)
  Receive Date: 20040729
  Receipt Date: 20040729
  Transmission Date: 20050211
  Serious: Yes (Hospitalization)
  Sender: FDA-Public Use
  Company Number: None

PATIENT
  Age: 61 Year
  Sex: Male
  Weight: 72.6 kg

DRUGS (9)
  1. INTEGRILIN [Suspect]
     Indication: ANTIPLATELET THERAPY
     Dosage: 2(6.8 ML/HR BOLUSES) 12 ML/HR IV
     Route: 042
     Dates: start: 20040721, end: 20040722
  2. HEPARIN [Suspect]
     Indication: ANTICOAGULANT THERAPY
     Dosage: 3635 UNITS
     Dates: start: 20040721
  3. NITROGLYCERIN [Concomitant]
  4. FENTANYL [Concomitant]
  5. MIDAZOLAM [Concomitant]
  6. NITROPLASSOLE [Concomitant]
  7. ASPIRIN [Concomitant]
  8. CLOPIDOGREL [Concomitant]
  9. PEPCID [Concomitant]

REACTIONS (1)
  - CATHETER SITE HAEMORRHAGE [None]
